FAERS Safety Report 4434627-8 (Version None)
Quarter: 2004Q3

REPORT INFORMATION
  Report Type: 
  Country: None (occurrence: None)
  Receive Date: 20040824
  Receipt Date: 20040810
  Transmission Date: 20050211
  Serious: Yes (Hospitalization)
  Sender: FDA-Public Use
  Company Number: RENA-11129

PATIENT
  Age: 33 Year
  Sex: Male

DRUGS (4)
  1. RENAGEL [Suspect]
     Indication: HYPERPHOSPHATAEMIA
     Dosage: 4 G TID PO
     Route: 048
     Dates: start: 19990101
  2. LISINOPRIL [Concomitant]
  3. ATENOLOL [Concomitant]
  4. EPOGEN [Concomitant]

REACTIONS (16)
  - BONE DISORDER [None]
  - BONE PAIN [None]
  - FRACTURE [None]
  - HIP FRACTURE [None]
  - HYPERCALCAEMIA [None]
  - HYPERPARATHYROIDISM TERTIARY [None]
  - IODINE UPTAKE INCREASED [None]
  - JUGULAR VEIN THROMBOSIS [None]
  - METASTASES TO LUNG [None]
  - METASTATIC NEOPLASM [None]
  - NECROSIS [None]
  - PAIN IN EXTREMITY [None]
  - PARATHYROID HAEMORRHAGE [None]
  - PARATHYROID TUMOUR [None]
  - PRURITUS [None]
  - THERAPEUTIC RESPONSE DECREASED [None]
